FAERS Safety Report 22119225 (Version 1)
Quarter: 2023Q1

REPORT INFORMATION
  Report Type: Report from Study
  Country: DE (occurrence: DE)
  Receive Date: 20230321
  Receipt Date: 20230321
  Transmission Date: 20230418
  Serious: Yes (Hospitalization)
  Sender: FDA-Public Use
  Company Number: None

PATIENT
  Sex: Male

DRUGS (7)
  1. METHOTREXATE [Suspect]
     Active Substance: METHOTREXATE
     Indication: Spinal osteoarthritis
     Dosage: 10 MILLIGRAM, QW
     Dates: start: 20080319, end: 20200113
  2. ADALIMUMAB [Suspect]
     Active Substance: ADALIMUMAB
     Indication: Spinal osteoarthritis
     Dosage: 40 MILLIGRAM, Q2W
     Dates: start: 20190813
  3. METHOTREXATE [Suspect]
     Active Substance: METHOTREXATE
     Indication: Spinal osteoarthritis
     Dosage: 10 MILLIGRAM, QW
     Dates: start: 20200203
  4. METHOTREXATE [Suspect]
     Active Substance: METHOTREXATE
     Indication: Spinal osteoarthritis
     Dosage: 15 MG
     Dates: start: 20080319
  5. ADALIMUMAB [Suspect]
     Active Substance: ADALIMUMAB
     Indication: Spinal osteoarthritis
     Dosage: 40 MILLIGRAM
     Dates: start: 20191111
  6. ADALIMUMAB [Suspect]
     Active Substance: ADALIMUMAB
     Indication: Spinal osteoarthritis
     Dosage: 40 MILLIGRAM
     Dates: start: 20200203
  7. ADALIMUMAB [Suspect]
     Active Substance: ADALIMUMAB
     Indication: Spinal osteoarthritis
     Dosage: 40 MILLIGRAM, Q2W
     Dates: start: 20190813

REACTIONS (1)
  - Ischaemic cerebral infarction [Recovered/Resolved]

NARRATIVE: CASE EVENT DATE: 20200111
